FAERS Safety Report 9310699 (Version 3)
Quarter: 2014Q2

REPORT INFORMATION
  Report Type: Report from Study
  Country: IN (occurrence: IN)
  Receive Date: 20130527
  Receipt Date: 20140425
  Transmission Date: 20141212
  Serious: Yes (Death, Hospitalization)
  Sender: FDA-Public Use
  Company Number: IN-ROCHE-1078747

PATIENT
  Age: 54 Year
  Sex: Female

DRUGS (4)
  1. TRASTUZUMAB EMTANSINE [Suspect]
     Indication: BREAST CANCER METASTATIC
     Dosage: LAST DOSE PRIOR TO SAE: 09/JUN/2012.
     Route: 042
     Dates: start: 20120609
  2. TORASEMIDE [Concomitant]
     Indication: HYPERTENSION
     Route: 065
     Dates: start: 2009, end: 20120615
  3. AMLODIPINE [Concomitant]
     Indication: HYPERTENSION
     Route: 065
     Dates: start: 2009, end: 20120615
  4. ATORVASTATIN [Concomitant]
     Route: 065
     Dates: start: 2009, end: 20120615

REACTIONS (1)
  - Hepatic encephalopathy [Fatal]
